FAERS Safety Report 9086523 (Version 1)
Quarter: 2013Q1

REPORT INFORMATION
  Report Type: Report from Study
  Country: US (occurrence: US)
  Receive Date: 20130130
  Receipt Date: 20130130
  Transmission Date: 20140127
  Serious: No
  Sender: FDA-Public Use
  Company Number: US-ABBOTT-12P-163-0983306-00

PATIENT
  Sex: Female
  Weight: 72.64 kg

DRUGS (2)
  1. HUMIRA [Suspect]
     Indication: RHEUMATOID ARTHRITIS
     Dates: start: 201112, end: 20120603
  2. UNKNOWN CREAM (NON-ABBOTT) [Concomitant]
     Indication: PSORIASIS
     Dates: start: 201205

REACTIONS (1)
  - Psoriasis [Not Recovered/Not Resolved]
